FAERS Safety Report 23699342 (Version 1)
Quarter: 2024Q2

REPORT INFORMATION
  Report Type: Report from Study
  Country: US (occurrence: US)
  Receive Date: 20240402
  Receipt Date: 20240402
  Transmission Date: 20240716
  Serious: Yes (Death)
  Sender: FDA-Public Use
  Company Number: US-DSJP-DSU-2024-100536

PATIENT
  Age: 69 Year
  Sex: Female

DRUGS (3)
  1. ENHERTU [Suspect]
     Active Substance: FAM-TRASTUZUMAB DERUXTECAN-NXKI
     Indication: Product used for unknown indication
     Dosage: 354.78 MG, ONCE EVERY 3 WK, OVER 90 MINUTES
     Route: 042
     Dates: start: 20230831
  2. ENHERTU [Suspect]
     Active Substance: FAM-TRASTUZUMAB DERUXTECAN-NXKI
     Dosage: 348 MG, OVER 30 MINUTES ONCE EVERY 3 WK
     Route: 042
     Dates: start: 20240105
  3. ENHERTU [Suspect]
     Active Substance: FAM-TRASTUZUMAB DERUXTECAN-NXKI
     Dosage: UNK
     Route: 065
     Dates: start: 20240101

REACTIONS (3)
  - Death [Fatal]
  - Therapy change [Unknown]
  - Therapy change [Unknown]

NARRATIVE: CASE EVENT DATE: 20240105
